FAERS Safety Report 8600498-9 (Version None)
Quarter: 2012Q3

REPORT INFORMATION
  Report Type: 
  Country: None (occurrence: None)
  Receive Date: 20120808
  Receipt Date: 20120808
  Transmission Date: 20120928
  Serious: Yes (Life-Threatening)
  Sender: FDA-Public Use
  Company Number: None

PATIENT
  Sex: Male
  Weight: 104.3273 kg

DRUGS (1)
  1. AZITHROMYCIN [Suspect]
     Indication: COUGH
     Dosage: 1 TABLET DAILY
     Dates: start: 20120430

REACTIONS (1)
  - CEREBROVASCULAR ACCIDENT [None]
